FAERS Safety Report 18464291 (Version 1)
Quarter: 2020Q4

REPORT INFORMATION
  Report Type: Report from Study
  Country: ES (occurrence: ES)
  Receive Date: 20201104
  Receipt Date: 20201104
  Transmission Date: 20210114
  Serious: Yes (Other)
  Sender: FDA-Public Use
  Company Number: ES-JAZZ-2019-ES-016059

PATIENT
  Age: 49 Year
  Weight: 78 kg

DRUGS (8)
  1. DEFITELIO [Suspect]
     Active Substance: DEFIBROTIDE SODIUM
     Indication: VENOOCCLUSIVE DISEASE
  2. LOW MOLECULAR WEIGHT HEPARIN [Concomitant]
     Active Substance: UNSPECIFIED INGREDIENT
     Indication: PROPHYLAXIS
  3. GEMTUZUMAB OZOGAMICIN [Concomitant]
     Active Substance: GEMTUZUMAB OZOGAMICIN
     Indication: CHEMOTHERAPY
  4. CYCLOPHOSPHAMID [Concomitant]
     Active Substance: CYCLOPHOSPHAMIDE
     Indication: BONE MARROW CONDITIONING REGIMEN
  5. URSODEOXYCHOLIC ACID [Concomitant]
     Active Substance: URSODIOL
     Indication: PROPHYLAXIS
  6. METHYLPREDNISOLONE. [Concomitant]
     Active Substance: METHYLPREDNISOLONE
     Indication: PROPHYLAXIS
  7. DEFITELIO [Suspect]
     Active Substance: DEFIBROTIDE SODIUM
     Indication: PROPHYLAXIS
     Dosage: UNKNOWN DOSE
     Dates: start: 20190618, end: 20190701
  8. BUSULFAN. [Concomitant]
     Active Substance: BUSULFAN
     Indication: BONE MARROW CONDITIONING REGIMEN

REACTIONS (2)
  - Intentional product use issue [Unknown]
  - Venoocclusive disease [Recovered/Resolved]

NARRATIVE: CASE EVENT DATE: 2019
